FAERS Safety Report 5387488-7 (Version None)
Quarter: 2007Q3

REPORT INFORMATION
  Report Type: 
  Country: None (occurrence: None)
  Receive Date: 20070716
  Receipt Date: 20070705
  Transmission Date: 20080115
  Serious: Yes (Hospitalization)
  Sender: FDA-Public Use
  Company Number: FR-AMGEN-UK230816

PATIENT
  Age: 72 Year
  Sex: Female

DRUGS (1)
  1. MIMPARA [Suspect]
     Indication: DRUG USE FOR UNKNOWN INDICATION
     Route: 048
     Dates: start: 20050623

REACTIONS (2)
  - CONVULSION [None]
  - FATIGUE [None]
